FAERS Safety Report 8581639 (Version 5)
Quarter: 2013Q1

REPORT INFORMATION
  Report Type: Spontaneous
  Country: US (occurrence: US)
  Receive Date: 20120525
  Receipt Date: 20130128
  Transmission Date: 20140127
  Serious: Yes (Death, Hospitalization, Disabling, Other)
  Sender: FDA-Public Use
  Company Number: US-009507513-1205USA02855

PATIENT
  Sex: Male
  Weight: 85.71 kg

DRUGS (8)
  1. FOSAMAX [Suspect]
     Indication: OSTEOPOROSIS
     Dosage: 70 MG, QW
     Route: 048
     Dates: start: 200010, end: 20071205
  2. FOSAMAX [Suspect]
     Indication: OSTEOPOROSIS
     Dosage: 70 MG, QW
     Route: 048
     Dates: start: 20011029, end: 20071026
  3. SODIUM CHLORIDE [Concomitant]
     Indication: HYPERSENSITIVITY
     Dosage: UNK
     Dates: start: 200012, end: 200402
  4. CALCIUM CARBONATE [Concomitant]
     Dosage: UNK
     Dates: start: 200110, end: 200409
  5. ERGOCALCIFEROL [Concomitant]
     Indication: OSTEOPOROSIS
     Dosage: 50000 IU, BIW
     Route: 048
     Dates: start: 200110, end: 200712
  6. IBUPROFEN [Concomitant]
     Indication: ARTHRALGIA
     Dosage: 400 MG, BID
  7. HYDROCHLOROTHIAZIDE [Concomitant]
     Indication: HYPERTENSION
     Dosage: 25 MG, TIW
  8. LISINOPRIL [Concomitant]
     Indication: HYPERTENSION
     Dosage: 5 MG, QOD
     Route: 048

REACTIONS (52)
  - Femur fracture [Not Recovered/Not Resolved]
  - Intramedullary rod insertion [Not Recovered/Not Resolved]
  - Colon cancer metastatic [Fatal]
  - Metastases to lung [Unknown]
  - Small intestinal obstruction [Unknown]
  - Metastases to liver [Unknown]
  - Colectomy [Unknown]
  - Osteoporosis [Not Recovered/Not Resolved]
  - Stress fracture [Not Recovered/Not Resolved]
  - Low turnover osteopathy [Not Recovered/Not Resolved]
  - Deafness [Unknown]
  - Deafness unilateral [Unknown]
  - Bunion operation [Unknown]
  - Cataract operation [Unknown]
  - Chronic obstructive pulmonary disease [Not Recovered/Not Resolved]
  - Fungal infection [Unknown]
  - Infection [Unknown]
  - Pain [Unknown]
  - Hypercholesterolaemia [Unknown]
  - Seborrhoeic keratosis [Unknown]
  - Compression fracture [Unknown]
  - Osteoarthritis [Unknown]
  - Emphysema [Unknown]
  - Benign prostatic hyperplasia [Unknown]
  - Spinal osteoarthritis [Unknown]
  - Neuropathy peripheral [Unknown]
  - Cataract [Unknown]
  - Age-related macular degeneration [Unknown]
  - Muscular weakness [Unknown]
  - Tinnitus [Unknown]
  - Tooth disorder [Unknown]
  - Pharyngeal disorder [Unknown]
  - Foot deformity [Unknown]
  - Onychomycosis [Unknown]
  - Osteoarthritis [Unknown]
  - Cardiac failure congestive [Unknown]
  - Fluid overload [Unknown]
  - Pleural effusion [Unknown]
  - Rib fracture [Unknown]
  - Pleural fibrosis [Unknown]
  - Intervertebral disc space narrowing [Unknown]
  - Atelectasis [Unknown]
  - Cellulitis [Unknown]
  - Pulmonary fibrosis [Unknown]
  - Arthropod sting [Unknown]
  - Osteopenia [Unknown]
  - Oedema peripheral [Unknown]
  - Arthralgia [Unknown]
  - Nausea [Unknown]
  - Vomiting [Unknown]
  - Pain in extremity [Unknown]
  - Back pain [Unknown]
